FAERS Safety Report 5149661-2 (Version None)
Quarter: 2006Q4

REPORT INFORMATION
  Report Type: 
  Country: None (occurrence: None)
  Receive Date: 20061113
  Receipt Date: 20060706
  Transmission Date: 20070319
  Serious: No
  Sender: FDA-Public Use
  Company Number: US-GLAXOSMITHKLINE-A0611325A

PATIENT
  Age: 64 Year
  Sex: Male

DRUGS (3)
  1. COREG [Suspect]
     Dosage: 12.5MG TWICE PER DAY
     Route: 048
     Dates: start: 20060101
  2. LISINOPRIL [Concomitant]
  3. LASIX [Concomitant]

REACTIONS (2)
  - DEPRESSION [None]
  - ERECTILE DYSFUNCTION [None]
